FAERS Safety Report 10474727 (Version 2)
Quarter: 2015Q1

REPORT INFORMATION
  Report Type: Report from Study
  Country: FR (occurrence: FR)
  Receive Date: 20140925
  Receipt Date: 20150325
  Transmission Date: 20150720
  Serious: Yes (Death, Hospitalization)
  Sender: FDA-Public Use
  Company Number: FR-ROCHE-1465119

PATIENT
  Age: 51 Year
  Sex: Female

DRUGS (39)
  1. ASUNAPREVIR [Suspect]
     Active Substance: ASUNAPREVIR
     Indication: HEPATITIS C
     Route: 048
     Dates: start: 20130603, end: 20131019
  2. MEROPENEM. [Concomitant]
     Active Substance: MEROPENEM
  3. RETINOL PALMITATE [Concomitant]
  4. PYRIDOXINE HYDROCHLORIDE. [Concomitant]
     Active Substance: PYRIDOXINE HYDROCHLORIDE
  5. CYANOCOBALAMIN. [Concomitant]
     Active Substance: CYANOCOBALAMIN
  6. PEG-INTERFERON ALFA 2A [Suspect]
     Active Substance: PEGINTERFERON ALFA-2A
     Indication: HEPATITIS C
     Route: 058
     Dates: start: 20130506, end: 20130829
  7. PEG-INTERFERON ALFA 2A [Suspect]
     Active Substance: PEGINTERFERON ALFA-2A
     Dosage: DOSE REDUCED
     Route: 058
     Dates: start: 20130830, end: 20131019
  8. RIBAVIRIN. [Suspect]
     Active Substance: RIBAVIRIN
     Dosage: DOSE REDUCED
     Route: 048
     Dates: start: 20130830, end: 20131019
  9. TRUVADA [Concomitant]
     Active Substance: EMTRICITABINE\TENOFOVIR DISOPROXIL FUMARATE
     Route: 065
     Dates: start: 20130122
  10. ASCORBIC ACID. [Concomitant]
     Active Substance: ASCORBIC ACID
  11. HEPARIN SODIUM. [Concomitant]
     Active Substance: HEPARIN SODIUM
  12. KEPPRA [Concomitant]
     Active Substance: LEVETIRACETAM
     Route: 042
  13. ISENTRESS [Concomitant]
     Active Substance: RALTEGRAVIR POTASSIUM
     Route: 065
     Dates: start: 20130122
  14. IMIQUIMOD. [Concomitant]
     Active Substance: IMIQUIMOD
     Route: 065
     Dates: start: 20120312
  15. RIBOFLAVIN [Concomitant]
     Active Substance: RIBOFLAVIN
  16. SUCRALFATE. [Concomitant]
     Active Substance: SUCRALFATE
  17. DL-ALPHA TOCOPHEROL [Concomitant]
  18. DACLATASVIR [Suspect]
     Active Substance: DACLATASVIR
     Indication: HEPATITIS C
     Route: 048
     Dates: start: 20130603, end: 20131019
  19. NEORECORMON [Concomitant]
     Active Substance: ERYTHROPOIETIN
     Indication: ANAEMIA
     Route: 065
     Dates: start: 20130731
  20. DIFFU-K [Concomitant]
     Active Substance: POTASSIUM CHLORIDE
     Route: 065
     Dates: start: 20130907
  21. FLUCONAZOLE. [Concomitant]
     Active Substance: FLUCONAZOLE
  22. VALACICLOVIR [Concomitant]
     Active Substance: VALACYCLOVIR HYDROCHLORIDE
  23. PANTHENOL [Concomitant]
     Active Substance: PANTHENOL
  24. RIVOTRIL [Concomitant]
     Active Substance: CLONAZEPAM
     Route: 065
  25. SODIUM BORATE [Concomitant]
     Active Substance: SODIUM BORATE
  26. RIBAVIRIN. [Suspect]
     Active Substance: RIBAVIRIN
     Indication: HEPATITIS C
     Route: 048
     Dates: start: 20130506, end: 20130829
  27. TAHOR [Concomitant]
     Active Substance: ATORVASTATIN CALCIUM
     Route: 065
     Dates: start: 20121204
  28. TIENAM [Concomitant]
     Active Substance: CILASTATIN SODIUM\IMIPENEM
  29. DOLIPRANE [Concomitant]
     Active Substance: ACETAMINOPHEN
     Route: 065
     Dates: start: 20130830
  30. CIFLOX (FRANCE) [Concomitant]
     Active Substance: CIPROFLOXACIN
  31. NICOTINAMIDE [Concomitant]
     Active Substance: NIACINAMIDE
  32. ACTISKENAN [Concomitant]
     Active Substance: MORPHINE SULFATE
  33. VITAMIN D3 [Concomitant]
     Active Substance: CHOLECALCIFEROL
     Route: 065
     Dates: start: 20100916
  34. ZYVOXID [Concomitant]
     Active Substance: LINEZOLID
  35. FOLIC ACID. [Concomitant]
     Active Substance: FOLIC ACID
  36. BIOTIN [Concomitant]
     Active Substance: BIOTIN
  37. BORIC ACID [Concomitant]
     Active Substance: BORIC ACID
  38. ATORVASTATIN [Concomitant]
     Active Substance: ATORVASTATIN
  39. MORPHINE SULFATE. [Concomitant]
     Active Substance: MORPHINE SULFATE

REACTIONS (8)
  - Lung abscess [Fatal]
  - Dehydration [Recovered/Resolved]
  - Cardiac arrest [Fatal]
  - Acute prerenal failure [Unknown]
  - Epilepsy [Unknown]
  - Intracranial haematoma [Unknown]
  - Respiratory distress [Fatal]
  - Anaemia [Unknown]

NARRATIVE: CASE EVENT DATE: 20130829
